FAERS Safety Report 5101724-3 (Version None)
Quarter: 2006Q3

REPORT INFORMATION
  Report Type: 
  Country: None (occurrence: None)
  Receive Date: 20060731
  Receipt Date: 20060604
  Transmission Date: 20061208
  Serious: No
  Sender: FDA-Public Use
  Company Number: 2006PV014919

PATIENT
  Age: 58 Year
  Sex: Male
  Weight: 84.369 kg

DRUGS (3)
  1. BYETTA [Suspect]
     Indication: DIABETES MELLITUS NON-INSULIN-DEPENDENT
     Dosage: SEE IMAGE
     Route: 058
     Dates: start: 20060401, end: 20060504
  2. BYETTA [Suspect]
     Indication: DIABETES MELLITUS NON-INSULIN-DEPENDENT
     Dosage: SEE IMAGE
     Route: 058
     Dates: start: 20060505
  3. GLYBURIDE [Concomitant]

REACTIONS (4)
  - ANOREXIA [None]
  - NAUSEA [None]
  - PHOTOPHOBIA [None]
  - WEIGHT DECREASED [None]
